FAERS Safety Report 8124062-3 (Version None)
Quarter: 2012Q1

REPORT INFORMATION
  Report Type: 
  Country: None (occurrence: None)
  Receive Date: 20120209
  Receipt Date: 20120206
  Transmission Date: 20120608
  Serious: No
  Sender: FDA-Public Use
  Company Number: US-PFIZER INC-2012032285

PATIENT
  Sex: Male
  Weight: 78.9 kg

DRUGS (3)
  1. SUTENT [Suspect]
     Indication: LYMPHOMA
     Dosage: 12.5 MG, 4X/DAY
     Route: 048
     Dates: start: 20110916
  2. AVODART [Concomitant]
     Indication: PROSTATE CANCER
     Dosage: UNK
  3. SUTENT [Suspect]
     Indication: RENAL NEOPLASM

REACTIONS (14)
  - DIARRHOEA [None]
  - DYSGEUSIA [None]
  - RASH [None]
  - ANAEMIA [None]
  - NAUSEA [None]
  - VOMITING [None]
  - MANIA [None]
  - STOMATITIS [None]
  - DRY MOUTH [None]
  - GINGIVAL BLEEDING [None]
  - BLOOD CALCIUM DECREASED [None]
  - FATIGUE [None]
  - WEIGHT DECREASED [None]
  - BLOOD POTASSIUM DECREASED [None]
